FAERS Safety Report 21706193 (Version 2)
Quarter: 2023Q1

REPORT INFORMATION
  Report Type: Spontaneous
  Country: NZ (occurrence: NZ)
  Receive Date: 20221209
  Receipt Date: 20230119
  Transmission Date: 20230418
  Serious: Yes (Hospitalization, Other)
  Sender: FDA-Public Use
  Company Number: NZ-MYLANLABS-2022M1131461

PATIENT
  Age: 45 Year
  Sex: Male
  Weight: 86 kg

DRUGS (5)
  1. CLOZARIL [Suspect]
     Active Substance: CLOZAPINE
     Indication: Schizophrenia
     Dosage: 350 MILLIGRAM, HS  (100 MG AND 25 MG TABLET OVER 10 YEARS AGO)
     Route: 048
     Dates: start: 20090805
  2. AMISULPRIDE [Concomitant]
     Active Substance: AMISULPRIDE
     Indication: Schizophrenia
     Dosage: 200 MILLIGRAM, QD (4 MORNING AND 2 NIGHT)
     Route: 048
  3. ATORVASTATIN [Concomitant]
     Active Substance: ATORVASTATIN
     Indication: Blood cholesterol abnormal
     Dosage: 80 MILLIGRAM, AM (1 MORNING)
     Route: 065
     Dates: start: 202204
  4. OMEPRAZOLE [Concomitant]
     Active Substance: OMEPRAZOLE
     Indication: Prophylaxis
     Dosage: 20 MILLIGRAM, AM  (1 MORNING)
     Route: 065
     Dates: start: 202211
  5. ASCORBIC ACID [Concomitant]
     Active Substance: ASCORBIC ACID
     Indication: Supplementation therapy
     Dosage: 100 MILLIGRAM, AM (1 MORNING)
     Route: 065
     Dates: start: 202212

REACTIONS (3)
  - Colon cancer [Unknown]
  - Gastric disorder [Unknown]
  - Haemoglobin decreased [Not Recovered/Not Resolved]

NARRATIVE: CASE EVENT DATE: 20221213
